FAERS Safety Report 25461283 (Version 1)
Quarter: 2025Q2

REPORT INFORMATION
  Report Type: Spontaneous
  Country: US (occurrence: None)
  Receive Date: 20250618
  Receipt Date: 20250618
  Transmission Date: 20250716
  Serious: Yes (Other)
  Sender: FDA-CTU
  Company Number: None

PATIENT
  Age: 75 Year
  Sex: Male
  Weight: 45 kg

DRUGS (11)
  1. RYBELSUS [Suspect]
     Active Substance: SEMAGLUTIDE
     Indication: Diabetes mellitus
     Route: 048
     Dates: start: 20250211, end: 20250618
  2. JARDIANCE [Concomitant]
     Active Substance: EMPAGLIFLOZIN
  3. glimepiride, [Concomitant]
  4. LISINOPRIL [Concomitant]
     Active Substance: LISINOPRIL
  5. TAMSULOSIN [Concomitant]
     Active Substance: TAMSULOSIN
  6. BEMPEDOIC ACID [Concomitant]
     Active Substance: BEMPEDOIC ACID
  7. MONTELUKAST [Concomitant]
     Active Substance: MONTELUKAST
  8. Allegra180 [Concomitant]
  9. SENNA [Concomitant]
     Active Substance: SENNOSIDES
  10. DOCUSATE [Concomitant]
     Active Substance: DOCUSATE
  11. MAGNESIUM OXIDE [Concomitant]
     Active Substance: MAGNESIUM OXIDE

REACTIONS (3)
  - Hypoaesthesia [None]
  - Feeling cold [None]
  - Micturition urgency [None]

NARRATIVE: CASE EVENT DATE: 20250616
